FAERS Safety Report 8613246 (Version 4)
Quarter: 2014Q3

REPORT INFORMATION
  Report Type: Spontaneous
  Country: US (occurrence: US)
  Receive Date: 20120613
  Receipt Date: 20140805
  Transmission Date: 20150326
  Serious: Yes (Hospitalization, Other)
  Sender: FDA-Public Use
  Company Number: US-ASTRAZENECA-2005UW05100

PATIENT
  Age: 87 Year
  Sex: Female

DRUGS (6)
  1. METOPROLOL TARTRATE. [Suspect]
     Active Substance: METOPROLOL TARTRATE
     Route: 048
     Dates: start: 2014
  2. AMLODIPIN [Concomitant]
     Active Substance: AMLODIPINE BESYLATE
  3. IRON INFUSION [Concomitant]
     Active Substance: IRON
  4. NEXIUM [Suspect]
     Active Substance: ESOMEPRAZOLE MAGNESIUM
     Indication: GASTROOESOPHAGEAL REFLUX DISEASE
     Route: 048
  5. RHINOCORT AQUA [Suspect]
     Active Substance: BUDESONIDE
     Route: 045
  6. TOPROL XL [Suspect]
     Active Substance: METOPROLOL SUCCINATE
     Indication: HYPERTENSION
     Dosage: DAILY
     Route: 048

REACTIONS (12)
  - Vomiting [Not Recovered/Not Resolved]
  - Hypertension [Unknown]
  - Cataract [Unknown]
  - Drug ineffective [Unknown]
  - Flatulence [Unknown]
  - Malaise [Unknown]
  - Off label use [Not Recovered/Not Resolved]
  - Neoplasm malignant [Unknown]
  - Stress [Unknown]
  - Psychomotor hyperactivity [Unknown]
  - Nausea [Not Recovered/Not Resolved]
  - Bladder disorder [Unknown]

NARRATIVE: CASE EVENT DATE: 2014
